FAERS Safety Report 6552386-X (Version None)
Quarter: 2010Q1

REPORT INFORMATION
  Report Type: 
  Country: None (occurrence: None)
  Receive Date: 20100126
  Receipt Date: 20100118
  Transmission Date: 20100710
  Serious: Yes (Other)
  Sender: FDA-Public Use
  Company Number: CH-PFIZER INC-2010002443

PATIENT
  Age: 64 Year
  Sex: Male
  Weight: 85 kg

DRUGS (5)
  1. VIAGRA [Suspect]
     Dosage: 50 MG, UNK
     Route: 048
  2. AMLODIPINE BESILATE [Concomitant]
  3. COMILORIDE [Concomitant]
     Route: 048
  4. BEXIN [Concomitant]
     Dosage: 1 DF, 3X/DAY
     Route: 048
  5. SYMBICORT [Concomitant]
     Dosage: 200 UG, 2X/DAY

REACTIONS (2)
  - CIRCULATORY COLLAPSE [None]
  - SYNCOPE [None]
